FAERS Safety Report 12121573 (Version 1)
Quarter: 2016Q1

REPORT INFORMATION
  Report Type: Spontaneous
  Country: US (occurrence: US)
  Receive Date: 20160226
  Receipt Date: 20160226
  Transmission Date: 20160526
  Serious: No
  Sender: FDA-Public Use
  Company Number: US-ALLERGAN-1301337US

PATIENT
  Age: 60 Year
  Sex: Female

DRUGS (4)
  1. REFRESH OPTIVE SENSITIVE [Suspect]
     Active Substance: CARBOXYMETHYLCELLULOSE SODIUM\GLYCERIN
     Indication: DRY EYE
     Dosage: UNK UNK, QAM
     Route: 047
  2. REFRESH P.M. [Suspect]
     Active Substance: MINERAL OIL\PETROLATUM
     Indication: DRY EYE
     Dosage: UNK UNK, QHS
     Route: 047
  3. POTASSIUM [Concomitant]
     Active Substance: POTASSIUM
     Indication: PRODUCT USED FOR UNKNOWN INDICATION
     Dosage: UNK
  4. ETODOLAC. [Concomitant]
     Active Substance: ETODOLAC
     Indication: INFLAMMATION

REACTIONS (7)
  - Erythema of eyelid [Recovered/Resolved]
  - Hypersensitivity [Unknown]
  - Eye irritation [Recovered/Resolved]
  - Rash [Recovered/Resolved]
  - Fungal infection [Recovered/Resolved]
  - Eyelid disorder [Recovered/Resolved]
  - Eye swelling [Recovered/Resolved]
